FAERS Safety Report 24230132 (Version 1)
Quarter: 2024Q3

REPORT INFORMATION
  Report Type: Spontaneous
  Country: US (occurrence: US)
  Receive Date: 20240820
  Receipt Date: 20240820
  Transmission Date: 20241017
  Serious: Yes (Other)
  Sender: ORGANON
  Company Number: US-ORGANON-O2408USA001206

PATIENT
  Age: 19 Year
  Sex: Female

DRUGS (2)
  1. NUVARING [Suspect]
     Active Substance: ETHINYL ESTRADIOL\ETONOGESTREL
     Indication: Contraception
     Dosage: 1 RING INSERTED EVERY 3 WEEKS
     Route: 067
     Dates: start: 20240713
  2. NUVARING [Suspect]
     Active Substance: ETHINYL ESTRADIOL\ETONOGESTREL
     Dosage: 1 RING INSERTED EVERY 3 WEEKS
     Route: 067
     Dates: start: 202407

REACTIONS (12)
  - Device expulsion [Unknown]
  - Vulvovaginal erythema [Unknown]
  - Vulvovaginal inflammation [Unknown]
  - Vulvovaginal pruritus [Unknown]
  - Withdrawal bleed [Unknown]
  - Device difficult to use [Unknown]
  - Circumstance or information capable of leading to medication error [Unknown]
  - Incorrect product administration duration [Unknown]
  - Medical device site discomfort [Unknown]
  - Product physical issue [Unknown]
  - Poor quality device used [Unknown]
  - Product quality issue [Unknown]

NARRATIVE: CASE EVENT DATE: 20240701
